FAERS Safety Report 24256999 (Version 2)
Quarter: 2024Q3

REPORT INFORMATION
  Report Type: Report from Study
  Country: GB (occurrence: GB)
  Receive Date: 20240828
  Receipt Date: 20240917
  Transmission Date: 20241017
  Serious: Yes (Other)
  Sender: ABBVIE
  Company Number: GB-ABBVIE-5892932

PATIENT
  Age: 33 Year
  Sex: Female

DRUGS (2)
  1. SKYRIZI [Suspect]
     Active Substance: RISANKIZUMAB-RZAA
     Indication: Crohn^s disease
     Dosage: FORM STRENGTH: 360MG
     Route: 058
     Dates: end: 2024
  2. SKYRIZI [Suspect]
     Active Substance: RISANKIZUMAB-RZAA
     Dosage: FORM STRENGTH: 360?FORM STRENGTH UNITS: MILLIGRAM
     Route: 058
     Dates: start: 20240911

REACTIONS (6)
  - Anal injury [Unknown]
  - Infection [Unknown]
  - Vascular device infection [Unknown]
  - Central venous catheterisation [Unknown]
  - Wound infection [Recovered/Resolved]
  - Catheter site discharge [Unknown]

NARRATIVE: CASE EVENT DATE: 20240101
